FAERS Safety Report 6599089-3 (Version None)
Quarter: 2010Q1

REPORT INFORMATION
  Report Type: 
  Country: None (occurrence: None)
  Receive Date: 20100224
  Receipt Date: 20091005
  Transmission Date: 20100710
  Serious: No
  Sender: FDA-Public Use
  Company Number: US-BRISTOL-MYERS SQUIBB COMPANY-14774012

PATIENT
  Age: 52 Year
  Sex: Female

DRUGS (12)
  1. METFORMIN HCL [Suspect]
     Indication: TYPE 2 DIABETES MELLITUS
     Route: 048
     Dates: start: 20090701
  2. VICODIN [Suspect]
     Indication: PAIN
     Dosage: 1 DF= 7.5-750 MG :1 TABLET
     Route: 048
     Dates: end: 20090810
  3. NABUMETONE [Suspect]
  4. PREGABALIN [Suspect]
     Dosage: CAPS
     Route: 048
     Dates: end: 20090710
  5. VALIUM [Suspect]
     Dosage: 1 TAB 2 PER 1 DAY
     Route: 048
     Dates: end: 20090810
  6. ALLEGRA [Concomitant]
     Dosage: TABS
     Route: 048
     Dates: end: 20090710
  7. AMBIEN CR [Concomitant]
     Dosage: TABS
     Route: 048
     Dates: end: 20090810
  8. INSULIN [Concomitant]
     Dosage: BD INSULIN PEN NEEDLE UF SHORT NEEDLE 31X5/16
     Route: 058
     Dates: end: 20090810
  9. LOPRESSOR [Concomitant]
     Dosage: TABS
     Route: 048
     Dates: end: 20090710
  10. MULTI-VITAMIN [Concomitant]
     Dosage: 1 DF = 1 TABS
     Route: 048
  11. NOVOLOG [Concomitant]
     Dosage: NOVOLOG MIX 70-30 FELX PEN INSULIN PEN 100 UNIT/ML(70-30)
     Dates: end: 20090810
  12. PRILOSEC [Concomitant]
     Dosage: PRILOSEC OTC TABS DELAYED RELEASE
     Route: 048
     Dates: end: 20090309

REACTIONS (2)
  - HYPERSENSITIVITY [None]
  - LIVER FUNCTION TEST ABNORMAL [None]
